FAERS Safety Report 7590793-7 (Version None)
Quarter: 2011Q3

REPORT INFORMATION
  Report Type: 
  Country: None (occurrence: None)
  Receive Date: 20110705
  Receipt Date: 20110701
  Transmission Date: 20111222
  Serious: Yes (Other)
  Sender: FDA-Public Use
  Company Number: CL-PFIZER INC-2011122411

PATIENT
  Age: 81 Year
  Sex: Female

DRUGS (2)
  1. PHENYTOIN SODIUM CAP [Suspect]
     Indication: CONVULSION PROPHYLAXIS
     Dosage: 100 MG, 3X/DAY
     Route: 048
     Dates: start: 20110531, end: 20110603
  2. PHENYTOIN SODIUM CAP [Suspect]
     Indication: HAEMORRHAGE

REACTIONS (3)
  - TENSION [None]
  - CONSTIPATION [None]
  - BLOOD PRESSURE INCREASED [None]
